FAERS Safety Report 18404455 (Version 1)
Quarter: 2020Q4

REPORT INFORMATION
  Report Type: Spontaneous
  Country: HU (occurrence: HU)
  Receive Date: 20201020
  Receipt Date: 20201020
  Transmission Date: 20210114
  Serious: Yes (Other)
  Sender: FDA-Public Use
  Company Number: NVSC2020HU278588

PATIENT
  Age: 37 Year
  Sex: Female

DRUGS (7)
  1. NILOTINIB [Suspect]
     Active Substance: NILOTINIB
     Dosage: 300 MG, BID (2X)
     Route: 065
     Dates: start: 20200923
  2. NILOTINIB [Suspect]
     Active Substance: NILOTINIB
     Dosage: 150 MG, QD (1X)
     Route: 065
     Dates: start: 20200612, end: 20200805
  3. NILOTINIB [Suspect]
     Active Substance: NILOTINIB
     Dosage: 150 MG, BID (2X)
     Route: 065
     Dates: start: 20200805
  4. NILOTINIB [Suspect]
     Active Substance: NILOTINIB
     Indication: PRODUCT USED FOR UNKNOWN INDICATION
     Dosage: 300 MG, BID (2X)
     Route: 065
     Dates: start: 20200121, end: 20200304
  5. HIDROXIUREA [Concomitant]
     Active Substance: HYDROXYUREA
     Indication: CYTOREDUCTIVE SURGERY
     Dosage: UNK
     Route: 065
  6. NILOTINIB [Suspect]
     Active Substance: NILOTINIB
     Dosage: 150 MG, BID (2X)
     Route: 065
     Dates: start: 20200527
  7. NILOTINIB [Suspect]
     Active Substance: NILOTINIB
     Dosage: 300 MG (150 MG IN THE MORNING, 300 MG IN THE EVENING)
     Route: 065
     Dates: start: 20200909

REACTIONS (7)
  - Haemoglobin decreased [Recovered/Resolved]
  - White blood cell count increased [Not Recovered/Not Resolved]
  - Menorrhagia [Unknown]
  - Haematoma [Unknown]
  - Platelet count decreased [Not Recovered/Not Resolved]
  - Philadelphia chromosome positive [Unknown]
  - Therapeutic product effect incomplete [Unknown]

NARRATIVE: CASE EVENT DATE: 2020
